FAERS Safety Report 25287941 (Version 1)
Quarter: 2025Q2

REPORT INFORMATION
  Report Type: Spontaneous
  Country: BR (occurrence: BR)
  Receive Date: 20250509
  Receipt Date: 20250509
  Transmission Date: 20250717
  Serious: Yes (Other)
  Sender: PFIZER
  Company Number: BR-TAKEDA-2025TUS043277

PATIENT
  Age: 73 Year
  Sex: Female
  Weight: 66 kg

DRUGS (4)
  1. PANTOPRAZOLE [Suspect]
     Active Substance: PANTOPRAZOLE
     Route: 065
  2. VONOPRAZAN FUMARATE [Suspect]
     Active Substance: VONOPRAZAN FUMARATE
     Indication: Abdominal discomfort
     Dosage: 10 MG, 1X/DAY
  3. RISEDRONATE SODIUM [Concomitant]
     Active Substance: RISEDRONATE SODIUM
     Indication: Bone disorder
  4. METFORMIN HYDROCHLORIDE [Concomitant]
     Active Substance: METFORMIN HYDROCHLORIDE
     Indication: Glucose tolerance impaired

REACTIONS (6)
  - Gastric ulcer [Unknown]
  - Iodine allergy [Unknown]
  - Helicobacter infection [Unknown]
  - Gastritis [Unknown]
  - Hiatus hernia [Unknown]
  - Gastrooesophageal reflux disease [Unknown]
